FAERS Safety Report 23152567 (Version 1)
Quarter: 2023Q4

REPORT INFORMATION
  Report Type: Spontaneous
  Country: US (occurrence: US)
  Receive Date: 20231107
  Receipt Date: 20231107
  Transmission Date: 20240110
  Serious: Yes (Death, Hospitalization)
  Sender: FDA-Public Use
  Company Number: US-AVET LIFESCIENCES LTD-2023-AVET-000323

PATIENT
  Age: 47 Year
  Sex: Male

DRUGS (5)
  1. DEXAMETHASONE [Suspect]
     Active Substance: DEXAMETHASONE
     Indication: B-cell type acute leukaemia
     Dosage: ONE CYCLE
  2. CYCLOPHOSPHAMIDE [Suspect]
     Active Substance: CYCLOPHOSPHAMIDE
     Indication: B-cell type acute leukaemia
     Dosage: ONE CYCLE
  3. VINCRISTINE [Suspect]
     Active Substance: VINCRISTINE
     Indication: B-cell type acute leukaemia
     Dosage: ONE CYCLE
  4. DOXORUBICIN [Suspect]
     Active Substance: DOXORUBICIN
     Indication: B-cell type acute leukaemia
     Dosage: ONE CYCLE
  5. INOTUZUMAB OZOGAMICIN [Suspect]
     Active Substance: INOTUZUMAB OZOGAMICIN
     Indication: B-cell type acute leukaemia

REACTIONS (5)
  - Cardiac arrest [Fatal]
  - Subdural haematoma [Unknown]
  - Adverse drug reaction [Unknown]
  - Upper gastrointestinal haemorrhage [Unknown]
  - Sepsis [Unknown]
